FAERS Safety Report 9150818 (Version 1)
Quarter: 2013Q1

REPORT INFORMATION
  Report Type: Spontaneous
  Country: US (occurrence: US)
  Receive Date: 20130308
  Receipt Date: 20130308
  Transmission Date: 20140127
  Serious: No
  Sender: FDA-Public Use
  Company Number: US-GLAXOSMITHKLINE-A0964337A

PATIENT
  Age: 87 Year
  Sex: Male

DRUGS (1)
  1. NICORETTE [Suspect]
     Indication: SMOKING CESSATION THERAPY
     Route: 002
     Dates: end: 20120202

REACTIONS (9)
  - Fatigue [Recovered/Resolved]
  - Headache [Recovered/Resolved]
  - Mental impairment [Recovered/Resolved]
  - Malaise [Recovered/Resolved]
  - Nicotine dependence [Not Recovered/Not Resolved]
  - Intentional drug misuse [Recovered/Resolved]
  - Somnolence [Recovered/Resolved]
  - Adverse drug reaction [Recovered/Resolved]
  - Overdose [Not Recovered/Not Resolved]
